FAERS Safety Report 4285837-4 (Version None)
Quarter: 2004Q1

REPORT INFORMATION
  Report Type: 
  Country: None (occurrence: None)
  Receive Date: 20040203
  Receipt Date: 20040127
  Transmission Date: 20041129
  Serious: Yes (Hospitalization)
  Sender: FDA-Public Use
  Company Number: 2004196255PR

PATIENT
  Age: 74 Year
  Sex: Male

DRUGS (4)
  1. DETROL LA [Suspect]
     Indication: INCONTINENCE
     Dosage: 2 MG QOD ORAL
     Route: 048
  2. COUMADIN [Concomitant]
  3. DIGOXIN [Concomitant]
  4. PREVACID [Concomitant]

REACTIONS (1)
  - HYDROCELE [None]
